FAERS Safety Report 12757282 (Version 1)
Quarter: 2016Q3

REPORT INFORMATION
  Report Type: Spontaneous
  Country: CA (occurrence: CA)
  Receive Date: 20160919
  Receipt Date: 20160919
  Transmission Date: 20161109
  Serious: Yes (Hospitalization)
  Sender: FDA-Public Use
  Company Number: CA-ROCHE-1831645

PATIENT
  Age: 58 Year
  Sex: Female

DRUGS (13)
  1. RITUXAN [Suspect]
     Active Substance: RITUXIMAB
     Indication: HYPERSENSITIVITY VASCULITIS
     Route: 041
  2. ACTONEL [Suspect]
     Active Substance: RISEDRONATE SODIUM
     Indication: PRODUCT USED FOR UNKNOWN INDICATION
     Route: 065
  3. RITUXAN [Suspect]
     Active Substance: RITUXIMAB
     Indication: CHOLANGITIS SCLEROSING
  4. IMURAN [Suspect]
     Active Substance: AZATHIOPRINE
     Indication: PRODUCT USED FOR UNKNOWN INDICATION
     Dosage: PRODUCT USED FOR UNKNOWN INDICATION
     Route: 065
  5. PANTOPRAZOLE [Concomitant]
     Active Substance: PANTOPRAZOLE SODIUM
  6. ASACOL [Concomitant]
     Active Substance: MESALAMINE
     Route: 065
  7. DIPHENHYDRAMINE HYDROCHLORIDE. [Concomitant]
     Active Substance: DIPHENHYDRAMINE HYDROCHLORIDE
  8. PREDNISONE. [Concomitant]
     Active Substance: PREDNISONE
  9. ONE ALPHA [Concomitant]
     Active Substance: ALFACALCIDOL
  10. RITUXAN [Suspect]
     Active Substance: RITUXIMAB
     Indication: COLITIS ULCERATIVE
  11. ACETAMINOPHEN. [Concomitant]
     Active Substance: ACETAMINOPHEN
  12. JANUVIA [Concomitant]
     Active Substance: SITAGLIPTIN PHOSPHATE
  13. METHYLPREDNISOLONE. [Concomitant]
     Active Substance: METHYLPREDNISOLONE

REACTIONS (5)
  - Sepsis [Recovered/Resolved]
  - White blood cell count decreased [Recovered/Resolved]
  - Off label use [Recovered/Resolved]
  - Arthritis [Recovered/Resolved]
  - Osteoporosis [Recovered/Resolved]
